FAERS Safety Report 6683841-X (Version None)
Quarter: 2010Q2

REPORT INFORMATION
  Report Type: 
  Country: None (occurrence: None)
  Receive Date: 20100416
  Receipt Date: 20100414
  Transmission Date: 20101027
  Serious: Yes (Hospitalization)
  Sender: FDA-Public Use
  Company Number: FR-WYE-G05957110

PATIENT
  Sex: Male

DRUGS (1)
  1. ADVIL [Suspect]
     Indication: ABDOMINAL PAIN
     Dosage: UNKNOWN
     Route: 048
     Dates: start: 20091106, end: 20091106

REACTIONS (4)
  - ASTHENIA [None]
  - CONDITION AGGRAVATED [None]
  - RENAL FAILURE ACUTE [None]
  - VOMITING [None]
